FAERS Safety Report 8888725 (Version 1)
Quarter: 2012Q4

REPORT INFORMATION
  Report Type: 
  Country: NL (occurrence: NL)
  Receive Date: 20121106
  Receipt Date: 20121106
  Transmission Date: 20130627
  Serious: Yes (Other)
  Sender: FDA-Public Use
  Company Number: NL-GLAXOSMITHKLINE-B0841963A

PATIENT
  Age: 33 Year
  Sex: Female

DRUGS (3)
  1. VALACICLOVIR [Suspect]
     Indication: INFECTION
     Dosage: 500MG Twice per day
     Route: 048
     Dates: start: 20120912
  2. FLUCLOXACILLIN [Suspect]
     Indication: INFECTION
     Dosage: 500MG Four times per day
     Route: 048
     Dates: start: 20120904
  3. YAZ [Suspect]
     Indication: CONTRACEPTION
     Route: 048
     Dates: start: 20110318, end: 20121001

REACTIONS (3)
  - Pregnancy on contraceptive [Not Recovered/Not Resolved]
  - Drug interaction [Not Recovered/Not Resolved]
  - Exposure during pregnancy [Unknown]
